FAERS Safety Report 6073932-9 (Version None)
Quarter: 2009Q1

REPORT INFORMATION
  Report Type: 
  Country: None (occurrence: None)
  Receive Date: 20090211
  Receipt Date: 20090129
  Transmission Date: 20090719
  Serious: Yes (Other)
  Sender: FDA-Public Use
  Company Number: PHHY2009BR03339

PATIENT
  Age: 55 Year
  Sex: Female
  Weight: 58.6 kg

DRUGS (2)
  1. DIOVAN HCT [Suspect]
     Indication: HYPERTENSION
     Dosage: 160/12.5 MG, 1 TABLET DAILY
     Route: 048
  2. DIOVAN HCT [Suspect]
     Dosage: 160/12.5 MG, 2 TABLET DAILY
     Route: 048
     Dates: start: 20081001

REACTIONS (9)
  - DRUG DEPENDENCE [None]
  - DYSPNOEA [None]
  - ECONOMIC PROBLEM [None]
  - FEELING ABNORMAL [None]
  - HEADACHE [None]
  - HYPOAESTHESIA ORAL [None]
  - MEMORY IMPAIRMENT [None]
  - NAUSEA [None]
  - NIGHTMARE [None]
